FAERS Safety Report 10019765 (Version 2)
Quarter: 2014Q3

REPORT INFORMATION
  Report Type: Report from Study
  Country: CN (occurrence: CN)
  Receive Date: 20140318
  Receipt Date: 20140708
  Transmission Date: 20150326
  Serious: Yes (Death)
  Sender: FDA-Public Use
  Company Number: CN-CELGENEUS-035-CCAZA-14031565

PATIENT
  Age: 69 Year
  Sex: Male
  Weight: 60 kg

DRUGS (3)
  1. AZACITIDINE INJECTABLE [Suspect]
     Active Substance: AZACITIDINE
     Dosage: 122.25 MILLIGRAM/SQ. METER
     Route: 058
     Dates: end: 20140307
  2. AZACITIDINE INJECTABLE [Suspect]
     Active Substance: AZACITIDINE
     Indication: MYELODYSPLASTIC SYNDROME
     Dosage: 121.25 MILLIGRAM/SQ. METER
     Route: 058
     Dates: start: 20131202, end: 20131208
  3. AZACITIDINE INJECTABLE [Suspect]
     Active Substance: AZACITIDINE
     Dosage: 122.25 MILLIGRAM/SQ. METER
     Route: 058
     Dates: start: 20140113, end: 20140119

REACTIONS (1)
  - Death [Fatal]

NARRATIVE: CASE EVENT DATE: 20140307
